FAERS Safety Report 16227578 (Version 1)
Quarter: 2019Q2

REPORT INFORMATION
  Report Type: Spontaneous
  Country: US (occurrence: US)
  Receive Date: 20190318
  Receipt Date: 20190318
  Transmission Date: 20190711
  Serious: Yes (Hospitalization)
  Sender: FDA-Public Use
  Company Number: None

PATIENT
  Age: 36 Year
  Sex: Female

DRUGS (5)
  1. PHENERGAN RECTAL [Concomitant]
  2. MVI 13 [Concomitant]
  3. LACTATED RINGERS AND DEXTROSE SOLUTION [Suspect]
     Active Substance: CALCIUM CHLORIDE\DEXTROSE\DEXTROSE MONOHYDRATE\POTASSIUM CHLORIDE\SODIUM CHLORIDE\SODIUM LACTATE
     Indication: HYPEREMESIS GRAVIDARUM
     Route: 042
     Dates: start: 20190228, end: 20190307
  4. METOCLOPRANIDE [Concomitant]
  5. REGLAN SQ CONT [Concomitant]

REACTIONS (4)
  - Dyspnoea [None]
  - Choking sensation [None]
  - Chest pain [None]
  - Exposure during pregnancy [None]

NARRATIVE: CASE EVENT DATE: 20190307
